FAERS Safety Report 5354159-2 (Version None)
Quarter: 2007Q2

REPORT INFORMATION
  Report Type: 
  Country: None (occurrence: None)
  Receive Date: 20070612
  Receipt Date: 20070529
  Transmission Date: 20071010
  Serious: Yes (Hospitalization)
  Sender: FDA-Public Use
  Company Number: US-ELI_LILLY_AND_COMPANY-US200612004381

PATIENT
  Age: 71 Year
  Sex: Female
  Weight: 53.514 kg

DRUGS (9)
  1. ILETIN [Suspect]
     Indication: DIABETES MELLITUS
  2. ILETIN [Suspect]
     Indication: DIABETES MELLITUS
  3. HUMULIN R [Suspect]
     Indication: DIABETES MELLITUS
     Dosage: UNK, AS NEEDED
  4. LANTUS [Concomitant]
     Dosage: UNK, UNKNOWN
     Dates: start: 20040201
  5. NPH INSULIN [Concomitant]
     Dosage: 10 U, EACH MORNING
     Dates: end: 20010901
  6. NPH INSULIN [Concomitant]
     Dosage: 3 U, EACH EVENING
     Dates: end: 20010901
  7. REGULAR INSULIN [Concomitant]
     Dosage: 8 U, EACH MORNING
  8. REGULAR INSULIN [Concomitant]
     Dosage: 2.5 U, EACH EVENING
  9. ULTRALENTE INSULIN [Concomitant]
     Dosage: UNK, UNKNOWN
     Dates: start: 20010901, end: 20040201

REACTIONS (12)
  - ARTHRALGIA [None]
  - BLOOD GLUCOSE FLUCTUATION [None]
  - CAROTID ARTERY OCCLUSION [None]
  - CORONARY ARTERY OCCLUSION [None]
  - GOUT [None]
  - MUSCULOSKELETAL PAIN [None]
  - NECK PAIN [None]
  - NEUROPATHY [None]
  - OSTEOARTHRITIS [None]
  - PAIN IN EXTREMITY [None]
  - POLYMYALGIA RHEUMATICA [None]
  - THYROID DISORDER [None]
